FAERS Safety Report 22240958 (Version 1)
Quarter: 2023Q2

REPORT INFORMATION
  Report Type: Spontaneous
  Country: US (occurrence: None)
  Receive Date: 20230420
  Receipt Date: 20230420
  Transmission Date: 20230721
  Serious: Yes (Death)
  Sender: FDA-Public Use
  Company Number: None

PATIENT
  Age: 94 Year

DRUGS (1)
  1. ADBRY [Suspect]
     Active Substance: TRALOKINUMAB-LDRM
     Dosage: 300MG EVERY 2 WEEKS SUBQ?
     Route: 058
     Dates: start: 202205

REACTIONS (1)
  - Death [None]

NARRATIVE: CASE EVENT DATE: 20230420
